FAERS Safety Report 7563534-7 (Version None)
Quarter: 2011Q2

REPORT INFORMATION
  Report Type: 
  Country: None (occurrence: None)
  Receive Date: 20110615
  Receipt Date: 20110601
  Transmission Date: 20111010
  Serious: Yes (Hospitalization)
  Sender: FDA-Public Use
  Company Number: 1000020264

PATIENT
  Age: 76 Year
  Sex: Male
  Weight: 87 kg

DRUGS (5)
  1. ROFLUMILAST (ROFLUMILAST) (500 MICROGRAM, TABLETS) [Suspect]
     Indication: CHRONIC OBSTRUCTIVE PULMONARY DISEASE
     Dosage: 0.5 DF (0.5 DOSAGE FORMS, 1 IN D), ORAL
     Route: 048
     Dates: start: 20101027
  2. UNSPECIFIED LONG-ACTING BETA 2-AGONIST (BETA 2-AGONIST) (BETA 2-AGONIS [Concomitant]
  3. FORASEQ (FORMOTEROL, BUDESONIDE) (FORMOTEROL, BUDESONIDE) [Concomitant]
  4. ROFLUMILAST (ROFLUMILAST) (500 MICROGRAM, TABLETS) [Suspect]
     Indication: CHRONIC OBSTRUCTIVE PULMONARY DISEASE
     Dosage: 0.5 DF (0.5 DOSAGE FORMS, 1 IN D), ORAL
     Route: 048
  5. SPIRIVA (TIOTROPIUM BROMIDE) (TIOTROPIUM BROMIDE) [Concomitant]

REACTIONS (6)
  - NAUSEA [None]
  - DIARRHOEA [None]
  - CEREBROVASCULAR ACCIDENT [None]
  - VOMITING [None]
  - DYSPHAGIA [None]
  - ORAL CANDIDIASIS [None]
